FAERS Safety Report 6805359-3 (Version None)
Quarter: 2010Q2

REPORT INFORMATION
  Report Type: 
  Country: None (occurrence: None)
  Receive Date: 20100628
  Receipt Date: 20071023
  Transmission Date: 20101027
  Serious: Yes (Other)
  Sender: FDA-Public Use
  Company Number: US-PFIZER INC-2007090114

PATIENT
  Sex: Female
  Weight: 81.6 kg

DRUGS (3)
  1. GEODON [Suspect]
     Indication: BIPOLAR DISORDER
     Route: 048
     Dates: start: 20070501
  2. LEXAPRO [Suspect]
     Indication: DEPRESSION
     Dosage: DAILY
     Route: 048
  3. XANAX [Concomitant]
     Route: 048

REACTIONS (3)
  - BURNING SENSATION [None]
  - MUSCLE TWITCHING [None]
  - PRURITUS [None]
